FAERS Safety Report 4835770-1 (Version None)
Quarter: 2005Q4

REPORT INFORMATION
  Report Type: 
  Country: None (occurrence: None)
  Receive Date: 20051123
  Receipt Date: 20051117
  Transmission Date: 20060501
  Serious: Yes (Other)
  Sender: FDA-Public Use
  Company Number: US-GLAXOSMITHKLINE-A0582735A

PATIENT
  Age: 55 Year
  Sex: Male

DRUGS (7)
  1. ZOFRAN [Suspect]
     Indication: PROPHYLAXIS OF NAUSEA AND VOMITING
     Dosage: 4MG TWICE PER DAY
     Route: 042
     Dates: start: 20051115, end: 20051115
  2. METOPROLOL [Concomitant]
  3. INSULIN [Concomitant]
  4. ALBUTEROL [Concomitant]
  5. SIMVASTATIN [Concomitant]
  6. OMEPRAZOLE [Concomitant]
  7. VANCOMYCIN [Concomitant]

REACTIONS (3)
  - INJECTION SITE DISCOMFORT [None]
  - NECROSIS [None]
  - RASH [None]
